FAERS Safety Report 6390695-8 (Version None)
Quarter: 2009Q4

REPORT INFORMATION
  Report Type: 
  Country: None (occurrence: None)
  Receive Date: 20091006
  Receipt Date: 20090929
  Transmission Date: 20100525
  Serious: Yes (Death, Congenital Anomaly)
  Sender: FDA-Public Use
  Company Number: AT-TEVA-109045ISR

PATIENT

DRUGS (2)
  1. COPAXONE [Suspect]
     Indication: MULTIPLE SCLEROSIS
     Route: 064
     Dates: start: 20021014, end: 20040331
  2. COPAXONE [Suspect]
     Route: 064
     Dates: start: 20050915, end: 20051102

REACTIONS (2)
  - STILLBIRTH [None]
  - TRISOMY 13 [None]
